FAERS Safety Report 4284069-3 (Version None)
Quarter: 2004Q1

REPORT INFORMATION
  Report Type: 
  Country: None (occurrence: None)
  Receive Date: 20040202
  Receipt Date: 20040202
  Transmission Date: 20041129
  Serious: Yes (Hospitalization)
  Sender: FDA-Public Use
  Company Number: None

PATIENT
  Age: 81 Year
  Sex: Female
  Weight: 67.1324 kg

DRUGS (7)
  1. AGRILYN 1 MILLIGRAM [Suspect]
     Indication: THROMBOCYTOPENIA
     Dosage: 1 MILLIG TID ORAL
     Route: 048
     Dates: start: 20040109, end: 20040119
  2. PREVACID [Concomitant]
  3. COREG [Concomitant]
  4. HYDROCHLOROTHIAZIDE [Concomitant]
  5. COZAAR [Concomitant]
  6. TYLENOL W/ CODEINE [Concomitant]
  7. SULAR [Concomitant]

REACTIONS (9)
  - ATRIAL FIBRILLATION [None]
  - DEHYDRATION [None]
  - FATIGUE [None]
  - LUNG INFILTRATION [None]
  - PLATELET COUNT DECREASED [None]
  - PLATELET COUNT INCREASED [None]
  - PNEUMONITIS [None]
  - RENAL FAILURE ACUTE [None]
  - TACHYCARDIA [None]
